FAERS Safety Report 23953352 (Version 1)
Quarter: 2024Q2

REPORT INFORMATION
  Report Type: Spontaneous
  Country: US (occurrence: US)
  Receive Date: 20240608
  Receipt Date: 20240608
  Transmission Date: 20240716
  Serious: No
  Sender: FDA-Public Use
  Company Number: US-SPECGX-T202301543

PATIENT

DRUGS (8)
  1. ACETAMINOPHEN\HYDROCODONE [Suspect]
     Active Substance: ACETAMINOPHEN\HYDROCODONE
     Indication: Pain
     Dosage: 1 DOSAGE FORM, Q4H (EVERY 4 HOURS IF NEEDED/MAXIMUM DAILY DOSAGE OF 5 TABLETS)
     Route: 048
     Dates: start: 201409
  2. PENICILLIN V POTASSIUM [Suspect]
     Active Substance: PENICILLIN V POTASSIUM
     Indication: Product used for unknown indication
     Dosage: 1 DOSAGE FORM, QID
     Route: 048
     Dates: start: 201409
  3. AMOXICILLIN [Suspect]
     Active Substance: AMOXICILLIN
     Indication: Product used for unknown indication
     Dosage: 1 DOSAGE FORM, TID
     Route: 048
     Dates: start: 201505
  4. AMOXICILLIN [Suspect]
     Active Substance: AMOXICILLIN
     Dosage: 1 DOSAGE FORM, TID (FOR 10 DAYS)
     Route: 048
     Dates: start: 201511
  5. CLINDAMYCIN HYDROCHLORIDE [Suspect]
     Active Substance: CLINDAMYCIN HYDROCHLORIDE
     Indication: Product used for unknown indication
     Dosage: 2 DOSAGE FORM, Q12H (FOR 7 DAYS)
     Route: 048
     Dates: start: 201512
  6. ONDANSETRON HYDROCHLORIDE [Suspect]
     Active Substance: ONDANSETRON HYDROCHLORIDE
     Indication: Nausea
     Dosage: 1 DOSAGE FORM, PRN
     Route: 048
     Dates: start: 201602
  7. SULFAMETHOXAZOLE\TRIMETHOPRIM [Suspect]
     Active Substance: SULFAMETHOXAZOLE\TRIMETHOPRIM
     Indication: Infection
     Dosage: 1 DOSAGE FORM, BID
     Route: 048
     Dates: start: 201602
  8. CIPROFLOXACIN HYDROCHLORIDE [Suspect]
     Active Substance: CIPROFLOXACIN HYDROCHLORIDE
     Indication: Product used for unknown indication
     Dosage: 1 DOSAGE FORM, BID (FOR 7 DAYS)
     Route: 048
     Dates: start: 201602

REACTIONS (1)
  - Injury [Unknown]
